FAERS Safety Report 12633449 (Version 1)
Quarter: 2016Q3

REPORT INFORMATION
  Report Type: Spontaneous
  Country: JP (occurrence: JP)
  Receive Date: 20160809
  Receipt Date: 20160809
  Transmission Date: 20161109
  Serious: Yes (Hospitalization, Other)
  Sender: FDA-Public Use
  Company Number: JP-BAYER-2016-147676

PATIENT
  Sex: Female

DRUGS (6)
  1. AZATHIOPRINE. [Concomitant]
     Active Substance: AZATHIOPRINE
     Route: 064
  2. ACETYLSALICYLIC ACID({=100 MG) [Suspect]
     Active Substance: ASPIRIN
     Route: 064
  3. PREDNISOLONE. [Concomitant]
     Active Substance: PREDNISOLONE
     Route: 064
  4. ACETYLSALICYLIC ACID({=100 MG) [Suspect]
     Active Substance: ASPIRIN
     Route: 064
  5. AZATHIOPRINE. [Concomitant]
     Active Substance: AZATHIOPRINE
     Route: 064
  6. PREDNISOLONE. [Concomitant]
     Active Substance: PREDNISOLONE
     Route: 064

REACTIONS (9)
  - Low birth weight baby [None]
  - Threatened labour [None]
  - HELLP syndrome [Recovering/Resolving]
  - Blood pressure decreased [None]
  - Loss of consciousness [None]
  - Maternal exposure during pregnancy [Recovered/Resolved]
  - Premature delivery [None]
  - Hypertension [None]
  - Apgar score low [None]
